FAERS Safety Report 7094326-3 (Version None)
Quarter: 2010Q4

REPORT INFORMATION
  Report Type: 
  Country: None (occurrence: None)
  Receive Date: 20101110
  Receipt Date: 20101103
  Transmission Date: 20110411
  Serious: Yes (Death, Life-Threatening, Hospitalization)
  Sender: FDA-Public Use
  Company Number: DE-TEVA-172544ISR

PATIENT
  Sex: Male
  Weight: 83 kg

DRUGS (7)
  1. FLUOROURACIL [Suspect]
     Indication: COLORECTAL CANCER METASTATIC
     Route: 040
     Dates: start: 20071203, end: 20080506
  2. FLUOROURACIL [Suspect]
     Route: 042
     Dates: start: 20071203, end: 20080506
  3. FOLINIC ACID [Suspect]
     Indication: COLORECTAL CANCER METASTATIC
     Route: 042
     Dates: start: 20071203, end: 20080506
  4. IRINOTECAN HYDROCHLORIDE [Suspect]
     Indication: COLORECTAL CANCER METASTATIC
     Dates: start: 20071203, end: 20080506
  5. CETUXIMAB [Suspect]
     Indication: COLORECTAL CANCER METASTATIC
     Dates: start: 20071203, end: 20080506
  6. METOCLOPRAMIDE HYDROCHLORIDE [Concomitant]
     Dates: start: 20071203, end: 20080506
  7. ONDANSETRON HYDROCHLORIDE [Concomitant]
     Dates: start: 20071203, end: 20080506

REACTIONS (2)
  - CEREBRAL INFARCTION [None]
  - CEREBROVASCULAR ACCIDENT [None]
